FAERS Safety Report 9788221 (Version 1)
Quarter: 2013Q4

REPORT INFORMATION
  Report Type: Spontaneous
  Country: BR (occurrence: BR)
  Receive Date: 20131230
  Receipt Date: 20131230
  Transmission Date: 20140711
  Serious: Yes (Other)
  Sender: FDA-Public Use
  Company Number: BR-JNJFOC-20131215545

PATIENT
  Age: 74 Year
  Sex: Male
  Weight: 72.11 kg

DRUGS (9)
  1. XARELTO [Suspect]
     Indication: EMBOLISM VENOUS
     Route: 048
     Dates: start: 20131122, end: 20131218
  2. XARELTO [Suspect]
     Indication: EMBOLISM VENOUS
     Route: 048
     Dates: start: 20131219
  3. XARELTO [Suspect]
     Indication: THROMBOPHLEBITIS
     Route: 048
     Dates: start: 20131122, end: 20131218
  4. XARELTO [Suspect]
     Indication: THROMBOPHLEBITIS
     Route: 048
     Dates: start: 20131219
  5. SIMVASTATIN [Concomitant]
     Indication: BLOOD CHOLESTEROL INCREASED
     Route: 048
  6. DIPROSPAN [Concomitant]
     Indication: THROMBOPHLEBITIS
     Route: 030
     Dates: start: 20131217, end: 20131217
  7. NIMESULIDE [Concomitant]
     Indication: THROMBOPHLEBITIS
     Route: 048
     Dates: start: 201211, end: 2012
  8. SELOZOK [Concomitant]
     Indication: CARDIAC DISORDER
     Route: 048
  9. DIOVAN HCT [Concomitant]
     Indication: HYPERTENSION
     Route: 048
     Dates: start: 2009

REACTIONS (4)
  - Thrombophlebitis septic [Unknown]
  - Limb injury [Recovered/Resolved]
  - Bleeding time prolonged [Recovered/Resolved]
  - Off label use [Unknown]
